FAERS Safety Report 9293257 (Version 1)
Quarter: 2013Q2

REPORT INFORMATION
  Report Type: Spontaneous
  Country: FR (occurrence: FR)
  Receive Date: 20130516
  Receipt Date: 20130516
  Transmission Date: 20140414
  Serious: Yes (Hospitalization, Other)
  Sender: FDA-Public Use
  Company Number: FR-MERCK-1305FRA007011

PATIENT
  Age: 23 Year
  Sex: Female

DRUGS (4)
  1. CANCIDAS [Suspect]
     Indication: ANTIBIOTIC PROPHYLAXIS
     Dosage: UNK
     Route: 042
     Dates: start: 20130329, end: 20130406
  2. MERONEM [Suspect]
     Indication: ANTIBIOTIC PROPHYLAXIS
     Dosage: UNK
     Route: 042
     Dates: start: 20130329, end: 20130407
  3. VANCOMYCIN MYLAN [Suspect]
     Indication: ANTIBIOTIC PROPHYLAXIS
     Dosage: UNK
     Route: 042
     Dates: start: 20130329, end: 20130406
  4. NEBCINE [Suspect]
     Indication: ANTIBIOTIC PROPHYLAXIS
     Dosage: UNK
     Route: 042
     Dates: start: 20130329, end: 20130405

REACTIONS (3)
  - Renal failure acute [Recovered/Resolved]
  - Hepatocellular injury [Recovered/Resolved]
  - Drug interaction [Recovered/Resolved]
